FAERS Safety Report 8485395 (Version 10)
Quarter: 2013Q1

REPORT INFORMATION
  Report Type: Spontaneous
  Country: US (occurrence: US)
  Receive Date: 20120330
  Receipt Date: 20130329
  Transmission Date: 20140127
  Serious: Yes (Hospitalization, Disabling, Other)
  Sender: FDA-Public Use
  Company Number: US-009507513-1203USA03400

PATIENT
  Sex: Female
  Weight: 62.59 kg

DRUGS (16)
  1. FOSAMAX [Suspect]
     Indication: OSTEOPOROSIS
     Dosage: 10 MG, QD
     Route: 048
     Dates: start: 19960216
  2. FOSAMAX [Suspect]
     Indication: OSTEOPENIA
     Dosage: 70 MG, QW
     Route: 048
     Dates: end: 201007
  3. FOSAMAX [Suspect]
     Indication: OSTEOPOROSIS
     Dosage: 70 MG, UNK
     Route: 048
     Dates: start: 20081210
  4. FOSAMAX [Suspect]
     Indication: OSTEOPENIA
  5. ALENDRONATE SODIUM [Suspect]
     Dosage: 70 MG, UNK
     Dates: start: 20080616
  6. BONIVA [Suspect]
     Indication: OSTEOPOROSIS
     Dosage: 150 MG, UNK
     Route: 048
     Dates: start: 200605, end: 200607
  7. ASPIRIN [Concomitant]
     Dosage: 81 MG, UNK
     Route: 048
  8. MK-9278 [Concomitant]
     Route: 048
  9. ASCORBIC ACID [Concomitant]
     Dosage: 500 MG, UNK
     Route: 048
  10. HYDROCHLOROTHIAZIDE (+) SPIRONOLACTONE [Concomitant]
     Indication: HYPERTENSION
     Route: 048
     Dates: start: 1980
  11. OGEN [Concomitant]
     Indication: OSTEOPOROSIS
     Dosage: UNK
     Dates: start: 1985
  12. OGEN [Concomitant]
     Indication: HORMONE REPLACEMENT THERAPY
  13. VITAMIN D (UNSPECIFIED) [Concomitant]
     Indication: OSTEOPOROSIS
  14. CALCIUM (UNSPECIFIED) [Concomitant]
     Indication: OSTEOPOROSIS
  15. TUMS ULTRA [Concomitant]
     Indication: OSTEOPOROSIS
     Dosage: 800 MG, TID
     Dates: start: 1999
  16. TUMS [Concomitant]
     Indication: OSTEOPOROSIS
     Dosage: 500 MG, TID

REACTIONS (37)
  - Femur fracture [Not Recovered/Not Resolved]
  - Femur fracture [Not Recovered/Not Resolved]
  - Intramedullary rod insertion [Unknown]
  - Osteoporosis [Not Recovered/Not Resolved]
  - Low turnover osteopathy [Not Recovered/Not Resolved]
  - Meniscus injury [Unknown]
  - Femur fracture [Unknown]
  - Tooth disorder [Unknown]
  - Tooth disorder [Unknown]
  - Tooth disorder [Unknown]
  - Dyslipidaemia [Not Recovered/Not Resolved]
  - Cardiac disorder [Unknown]
  - Osteoarthritis [Unknown]
  - Arthropathy [Unknown]
  - Rhinitis [Unknown]
  - Pterygium [Unknown]
  - Fall [Unknown]
  - Hydronephrosis [Unknown]
  - Nephrolithiasis [Unknown]
  - Cataract [Unknown]
  - Rib fracture [Unknown]
  - Pleural calcification [Unknown]
  - Fall [Unknown]
  - Pneumonia [Unknown]
  - Chest pain [Unknown]
  - Hypermetropia [Unknown]
  - Astigmatism [Unknown]
  - Arthropathy [Unknown]
  - Arthropathy [Recovering/Resolving]
  - Psoriasis [Unknown]
  - Pharyngitis [Unknown]
  - Pyrexia [Unknown]
  - Drug hypersensitivity [Unknown]
  - Arthralgia [Unknown]
  - Dysphagia [Unknown]
  - Hypersensitivity [Unknown]
  - Arthralgia [Recovering/Resolving]
